FAERS Safety Report 13315593 (Version 3)
Quarter: 2017Q3

REPORT INFORMATION
  Report Type: Report from Study
  Country: None (occurrence: US)
  Receive Date: 20170310
  Receipt Date: 20170811
  Transmission Date: 20171127
  Serious: Yes (Other)
  Sender: FDA-Public Use
  Company Number: US-ABBVIE-17K-163-1897810-00

PATIENT
  Age: 62 Year
  Sex: Female

DRUGS (1)
  1. HUMIRA [Suspect]
     Active Substance: ADALIMUMAB
     Indication: CROHN^S DISEASE
     Route: 058
     Dates: start: 201608

REACTIONS (8)
  - Systemic scleroderma [Not Recovered/Not Resolved]
  - Urinary incontinence [Recovered/Resolved]
  - Insomnia [Not Recovered/Not Resolved]
  - Dyskinesia [Recovering/Resolving]
  - Large intestinal stenosis [Unknown]
  - Musculoskeletal disorder [Recovering/Resolving]
  - Dysphagia [Recovering/Resolving]
  - Muscle spasms [Recovered/Resolved]

NARRATIVE: CASE EVENT DATE: 201701
